FAERS Safety Report 24702883 (Version 1)
Quarter: 2024Q4

REPORT INFORMATION
  Report Type: Spontaneous
  Country: ES (occurrence: ES)
  Receive Date: 20241205
  Receipt Date: 20241205
  Transmission Date: 20250115
  Serious: Yes (Life-Threatening, Disabling, Other)
  Sender: TEVA
  Company Number: None

PATIENT
  Age: 47 Year
  Sex: Male
  Weight: 88 kg

DRUGS (1)
  1. DUTASTERIDE [Suspect]
     Active Substance: DUTASTERIDE
     Indication: Androgenetic alopecia
     Dosage: I TOOK 0.25 MG A DAY, DUTASTERIDE (2893A)
     Route: 048
     Dates: start: 20230210

REACTIONS (6)
  - Tinnitus [Recovered/Resolved with Sequelae]
  - Depression [Recovered/Resolved with Sequelae]
  - Depersonalisation/derealisation disorder [Recovered/Resolved with Sequelae]
  - Suicidal ideation [Recovered/Resolved with Sequelae]
  - Insomnia [Recovered/Resolved with Sequelae]
  - Anxiety [Recovered/Resolved with Sequelae]

NARRATIVE: CASE EVENT DATE: 20230322
